FAERS Safety Report 7376027-7 (Version None)
Quarter: 2011Q1

REPORT INFORMATION
  Report Type: 
  Country: None (occurrence: None)
  Receive Date: 20110315
  Receipt Date: 20110310
  Transmission Date: 20110831
  Serious: Yes (Other)
  Sender: FDA-Public Use
  Company Number: A0917496A

PATIENT
  Age: 73 Year
  Sex: Female

DRUGS (2)
  1. METHYLCELLULOSE CAPLET (METHYCELLULOSE) [Suspect]
     Indication: PRODUCT USED FOR UNKNOWN INDICATION
  2. METHYLCELLULOSE (FORMULATION UNKNOWN) SUGAR FREE ORANGE (METHYLCELLULO [Suspect]

REACTIONS (2)
  - CHOKING [None]
  - DYSPHAGIA [None]
